FAERS Safety Report 4891064-X (Version None)
Quarter: 2006Q1

REPORT INFORMATION
  Report Type: 
  Country: None (occurrence: None)
  Receive Date: 20060123
  Receipt Date: 20060110
  Transmission Date: 20060701
  Serious: Yes (Other)
  Sender: FDA-Public Use
  Company Number: 2006006335

PATIENT
  Sex: Male
  Weight: 110.2241 kg

DRUGS (6)
  1. VIAGRA [Suspect]
     Indication: ERECTILE DYSFUNCTION
     Dosage: 50 MG (50 MG, 1 AS NECESSARY), ORAL
     Route: 048
  2. SUDAFED 12 HOUR [Suspect]
     Indication: ERECTION INCREASED
  3. PERIPHERAL VASODILATORS (PERIPHERAL VASODILATORS) [Suspect]
     Indication: ERECTILE DYSFUNCTION
  4. CLONIDINE [Concomitant]
  5. BENICAR [Concomitant]
  6. SULAR [Concomitant]

REACTIONS (6)
  - CHEST PAIN [None]
  - DRUG INEFFECTIVE [None]
  - DYSPEPSIA [None]
  - MUSCLE STRAIN [None]
  - PRIAPISM [None]
  - THERAPY NON-RESPONDER [None]
